FAERS Safety Report 10023028 (Version 2)
Quarter: 2014Q4

REPORT INFORMATION
  Report Type: Spontaneous
  Country: US (occurrence: US)
  Receive Date: 20140319
  Receipt Date: 20141107
  Transmission Date: 20150528
  Serious: Yes (Hospitalization, Disabling, Other)
  Sender: FDA-Public Use
  Company Number: US-SA-2014SA032290

PATIENT
  Sex: Female

DRUGS (1)
  1. PLAVIX [Suspect]
     Active Substance: CLOPIDOGREL BISULFATE
     Indication: PRODUCT USED FOR UNKNOWN INDICATION
     Route: 048

REACTIONS (10)
  - Loss of employment [Not Recovered/Not Resolved]
  - Tension [Not Recovered/Not Resolved]
  - Psychological trauma [Not Recovered/Not Resolved]
  - Pain [Not Recovered/Not Resolved]
  - Anhedonia [Not Recovered/Not Resolved]
  - Multiple injuries [Not Recovered/Not Resolved]
  - Social problem [Not Recovered/Not Resolved]
  - Economic problem [Not Recovered/Not Resolved]
  - Thrombotic thrombocytopenic purpura [Unknown]
  - Physical disability [Not Recovered/Not Resolved]

NARRATIVE: CASE EVENT DATE: 20060201
